FAERS Safety Report 6194832-X (Version None)
Quarter: 2009Q2

REPORT INFORMATION
  Report Type: 
  Country: None (occurrence: None)
  Receive Date: 20090515
  Receipt Date: 20090428
  Transmission Date: 20091009
  Serious: Yes (Life-Threatening)
  Sender: FDA-Public Use
  Company Number: 2009S1007469

PATIENT
  Age: 82 Year
  Sex: Female

DRUGS (7)
  1. FUROSEMIDE [Suspect]
     Indication: CARDIAC FAILURE
     Dosage: 50 MG;DAILY;ORAL
     Route: 048
     Dates: start: 20090402, end: 20090404
  2. COUMADIN [Concomitant]
  3. LANITOP [Concomitant]
  4. POTASSIUM CANRENOATE [Concomitant]
  5. PANTECTA [Concomitant]
  6. SEQUACOR [Concomitant]
  7. TAPAZOLE [Concomitant]

REACTIONS (2)
  - ABDOMINAL PAIN [None]
  - DIARRHOEA [None]
